FAERS Safety Report 5863087-5 (Version None)
Quarter: 2008Q3

REPORT INFORMATION
  Report Type: 
  Country: None (occurrence: None)
  Receive Date: 20080828
  Receipt Date: 20080821
  Transmission Date: 20090109
  Serious: Yes (Hospitalization)
  Sender: FDA-Public Use
  Company Number: US-AVENTIS-200717763US

PATIENT
  Sex: Female
  Weight: 86.37 kg

DRUGS (12)
  1. LANTUS [Suspect]
     Dates: start: 20060710
  2. LANTUS [Suspect]
  3. OPTICLIK (INSULIN INJECTION PEN) [Suspect]
     Dates: start: 20060710
  4. OPTICLIK (INSULIN INJECTION PEN) [Suspect]
     Dates: start: 20071107
  5. HYZAAR [Concomitant]
     Dates: start: 19850101
  6. PROTONIX [Concomitant]
     Dosage: DOSE: UNK
  7. TRAVATAN [Concomitant]
     Dosage: DOSE: UNK
     Route: 047
  8. PREDNISONE EYE DROPS [Concomitant]
     Dosage: DOSE: UNK
     Route: 047
  9. ASCORBIC ACID [Concomitant]
     Dosage: DOSE: UNK
  10. POTASSIUM CHLORIDE [Concomitant]
     Dosage: DOSE: UNK
  11. MSM [Concomitant]
     Dosage: DOSE: UNK
  12. WARFARIN SODIUM [Concomitant]
     Dates: start: 20071001

REACTIONS (2)
  - BLOOD GLUCOSE INCREASED [None]
  - THROMBOSIS [None]
